FAERS Safety Report 7149287-5 (Version None)
Quarter: 2010Q4

REPORT INFORMATION
  Report Type: 
  Country: None (occurrence: None)
  Receive Date: 20101209
  Receipt Date: 20101201
  Transmission Date: 20110411
  Serious: Yes (Other)
  Sender: FDA-Public Use
  Company Number: US-ASTRAZENECA-2010SE48527

PATIENT
  Age: 51 Year
  Sex: Female
  Weight: 88.9 kg

DRUGS (6)
  1. SEROQUEL XR [Suspect]
     Indication: SCHIZOPHRENIA
     Route: 048
  2. ABILIFY [Concomitant]
  3. AMISULPRIDE [Concomitant]
     Route: 048
  4. LEVOTHYROXINE SODIUM [Concomitant]
     Route: 048
     Dates: start: 20100511
  5. FERROUS SULFATE TAB [Concomitant]
     Route: 048
  6. FLUOXETINE [Concomitant]
     Route: 048

REACTIONS (3)
  - DRUG DOSE OMISSION [None]
  - FOOD CRAVING [None]
  - WEIGHT INCREASED [None]
